FAERS Safety Report 6335166-X (Version None)
Quarter: 2009Q3

REPORT INFORMATION
  Report Type: 
  Country: None (occurrence: None)
  Receive Date: 20090826
  Receipt Date: 20090812
  Transmission Date: 20100115
  Serious: Yes (Death)
  Sender: FDA-Public Use
  Company Number: POMP-1000697

PATIENT
  Age: 17 Year
  Sex: Female

DRUGS (1)
  1. MYOZYME [Suspect]
     Indication: GLYCOGEN STORAGE DISEASE TYPE II
     Dosage: 20 MG/KG, Q2W, INTRAVENOUS
     Route: 042

REACTIONS (11)
  - BRONCHIAL SECRETION RETENTION [None]
  - BRONCHITIS [None]
  - CARDIAC ARREST [None]
  - FLUID RETENTION [None]
  - GASTROOESOPHAGEAL REFLUX DISEASE [None]
  - MUSCULAR WEAKNESS [None]
  - OXYGEN SATURATION DECREASED [None]
  - PNEUMONIA [None]
  - SUDDEN DEATH [None]
  - VOMITING [None]
  - WEIGHT GAIN POOR [None]
